FAERS Safety Report 15204614 (Version 2)
Quarter: 2018Q3

REPORT INFORMATION
  Report Type: Spontaneous
  Country: KR (occurrence: KR)
  Receive Date: 20180726
  Receipt Date: 20180807
  Transmission Date: 20181010
  Serious: Yes (Hospitalization, Other)
  Sender: FDA-Public Use
  Company Number: KR-009507513-1807KOR011108

PATIENT
  Age: 72 Year
  Sex: Male

DRUGS (12)
  1. SIMVASTATIN. [Interacting]
     Active Substance: SIMVASTATIN
     Indication: ANGINA PECTORIS
  2. CYCLOSPORINE. [Interacting]
     Active Substance: CYCLOSPORINE
     Dosage: 200 MG, QD
     Dates: start: 201601, end: 201607
  3. CYCLOSPORINE. [Interacting]
     Active Substance: CYCLOSPORINE
     Dosage: 100 MG, QD
     Dates: start: 201704
  4. METHYLPREDNISOLONE. [Concomitant]
     Active Substance: METHYLPREDNISOLONE
     Indication: BEHCET^S SYNDROME
  5. ASPIRIN. [Concomitant]
     Active Substance: ASPIRIN
     Indication: ANGINA PECTORIS
  6. COLCHICINE. [Interacting]
     Active Substance: COLCHICINE
     Indication: BEHCET^S SYNDROME
     Dosage: 1.2 MG, QD
     Dates: start: 200802, end: 200803
  7. COLCHICINE. [Interacting]
     Active Substance: COLCHICINE
     Indication: ANGINA PECTORIS
     Dosage: 1.2 MG, QD
     Dates: start: 201204
  8. CYCLOSPORINE. [Interacting]
     Active Substance: CYCLOSPORINE
     Indication: BEHCET^S SYNDROME
     Dosage: 200 MG, QD
     Dates: start: 200803, end: 201006
  9. ASPIRIN. [Concomitant]
     Active Substance: ASPIRIN
     Indication: BEHCET^S SYNDROME
  10. SIMVASTATIN. [Suspect]
     Active Substance: SIMVASTATIN
     Indication: BEHCET^S SYNDROME
     Dosage: 20 MG, QD
     Route: 048
  11. CYCLOSPORINE. [Interacting]
     Active Substance: CYCLOSPORINE
     Indication: ANGINA PECTORIS
     Dosage: 100 MG, QD
     Dates: start: 201006, end: 201601
  12. METHYLPREDNISOLONE. [Concomitant]
     Active Substance: METHYLPREDNISOLONE
     Indication: ANGINA PECTORIS

REACTIONS (1)
  - Drug interaction [Recovered/Resolved]
